FAERS Safety Report 13777938 (Version 1)
Quarter: 2017Q3

REPORT INFORMATION
  Report Type: Spontaneous
  Country: US (occurrence: US)
  Receive Date: 20170721
  Receipt Date: 20170721
  Transmission Date: 20171127
  Serious: Yes (Other)
  Sender: FDA-Public Use
  Company Number: US-BAYER-2017-082854

PATIENT
  Sex: Male

DRUGS (1)
  1. ANTIHEMOPHILIC FACTOR (HUMAN) NOS [Suspect]
     Active Substance: ANTIHEMOPHILIC FACTOR HUMAN
     Indication: FACTOR VIII DEFICIENCY
     Dosage: DAILY DOSE: UNKNOWN

REACTIONS (3)
  - Hepatitis B [None]
  - Hepatitis C [None]
  - Suspected transmission of an infectious agent via product [None]
